FAERS Safety Report 8956805 (Version 2)
Quarter: 2013Q1

REPORT INFORMATION
  Report Type: Report from Study
  Country: FR (occurrence: FR)
  Receive Date: 20121210
  Receipt Date: 20130102
  Transmission Date: 20140127
  Serious: Yes (Life-Threatening, Hospitalization)
  Sender: FDA-Public Use
  Company Number: FR-ROCHE-1149506

PATIENT
  Age: 52 Year
  Sex: Female
  Weight: 50 kg

DRUGS (4)
  1. BEVACIZUMAB [Suspect]
     Indication: LUNG NEOPLASM MALIGNANT
     Dosage: TEMPORARILY INTERRUPTED, LAST DOSE PRIOR TO SAE 27/SEP/2012
     Route: 042
     Dates: start: 20101217, end: 20121018
  2. BEVACIZUMAB [Suspect]
     Route: 042
     Dates: start: 20120927
  3. DOCETAXEL [Suspect]
     Indication: LUNG NEOPLASM MALIGNANT
     Dosage: TEMPORARILY STOPPED,LAST DOSE PRIOR TO SAE 27/SEP/2012
     Route: 042
     Dates: start: 20120726, end: 20121018
  4. TANGANIL [Concomitant]
     Route: 065
     Dates: start: 2012

REACTIONS (2)
  - Alcohol poisoning [Recovered/Resolved]
  - Suicide attempt [Recovered/Resolved]
